FAERS Safety Report 6386060-X (Version None)
Quarter: 2009Q4

REPORT INFORMATION
  Report Type: 
  Country: None (occurrence: None)
  Receive Date: 20091002
  Receipt Date: 20081113
  Transmission Date: 20100525
  Serious: No
  Sender: FDA-Public Use
  Company Number: US-ASTRAZENECA-2008UW25446

PATIENT
  Age: 64 Year
  Sex: Female
  Weight: 55.3 kg

DRUGS (3)
  1. ARIMIDEX [Suspect]
     Indication: BREAST CANCER FEMALE
     Route: 048
     Dates: start: 20080901
  2. ACTONEL [Concomitant]
  3. HYDROCODEINE [Concomitant]

REACTIONS (3)
  - ARTHRALGIA [None]
  - DECREASED APPETITE [None]
  - PYREXIA [None]
